FAERS Safety Report 4490147-6 (Version None)
Quarter: 2004Q4

REPORT INFORMATION
  Report Type: 
  Country: None (occurrence: None)
  Receive Date: 20041027
  Receipt Date: 20041011
  Transmission Date: 20050328
  Serious: Yes (Hospitalization)
  Sender: FDA-Public Use
  Company Number: 201729

PATIENT
  Age: 48 Year
  Sex: Female
  Weight: 78.4723 kg

DRUGS (11)
  1. AVONEX [Suspect]
     Indication: MULTIPLE SCLEROSIS
     Dosage: 7.5 MCG QW IM
     Route: 030
     Dates: start: 20031118, end: 20031203
  2. AVONEX [Suspect]
     Indication: MULTIPLE SCLEROSIS
     Dosage: 15 MCG QW IM
     Route: 030
     Dates: start: 20031210, end: 20031210
  3. AVONEX [Suspect]
     Indication: MULTIPLE SCLEROSIS
     Dosage: 7.5 MCG QW IM
     Route: 030
     Dates: start: 20040517, end: 20040601
  4. AVONEX [Suspect]
     Indication: MULTIPLE SCLEROSIS
     Dosage: 22.5 MCG QW IM
     Route: 030
     Dates: start: 20040701, end: 20040801
  5. AVONEX [Suspect]
     Indication: MULTIPLE SCLEROSIS
     Dosage: 30 MCG QW IM
     Route: 030
     Dates: start: 20040901, end: 20040901
  6. AVONEX [Suspect]
     Indication: MULTIPLE SCLEROSIS
     Dosage: 22.5 MCG QW IM
     Route: 030
     Dates: start: 20040920
  7. PREVACID [Concomitant]
  8. ZANTAC [Concomitant]
  9. XANAX [Concomitant]
  10. ATENOLOL [Concomitant]
  11. PROPYL-THYRACIL [Concomitant]

REACTIONS (32)
  - ABDOMINAL PAIN [None]
  - ANAEMIA [None]
  - ARRHYTHMIA [None]
  - ASTHENIA [None]
  - BLOOD PHOSPHORUS DECREASED [None]
  - BRONCHOSPASM [None]
  - CONDITION AGGRAVATED [None]
  - COORDINATION ABNORMAL [None]
  - DISORIENTATION [None]
  - DIZZINESS [None]
  - DYSPNOEA [None]
  - DYSURIA [None]
  - EXTRASYSTOLES [None]
  - FACE OEDEMA [None]
  - FIBROADENOMA [None]
  - HAEMORRHOIDS [None]
  - HEART RATE DECREASED [None]
  - HEART RATE INCREASED [None]
  - HYPOAESTHESIA [None]
  - INFLUENZA LIKE ILLNESS [None]
  - INJECTION SITE HAEMORRHAGE [None]
  - INJECTION SITE PAIN [None]
  - MULTIPLE SCLEROSIS [None]
  - MUSCLE SPASMS [None]
  - OVARIAN CYST [None]
  - OVARIAN MASS [None]
  - PALPITATIONS [None]
  - RECTAL HAEMORRHAGE [None]
  - REFLUX GASTRITIS [None]
  - TRI-IODOTHYRONINE FREE DECREASED [None]
  - UPPER RESPIRATORY TRACT CONGESTION [None]
  - UTERINE LEIOMYOMA [None]
